FAERS Safety Report 8884958 (Version 1)
Quarter: 2012Q4

REPORT INFORMATION
  Report Type: 
  Country: US (occurrence: US)
  Receive Date: 20121102
  Receipt Date: 20121102
  Transmission Date: 20130627
  Serious: Yes (Hospitalization, Other)
  Sender: FDA-Public Use
  Company Number: US-ELI_LILLY_AND_COMPANY-US201210008044

PATIENT
  Sex: Female
  Weight: 99.77 kg

DRUGS (5)
  1. BYETTA [Suspect]
     Indication: INSULIN-REQUIRING TYPE 2 DIABETES MELLITUS
     Dosage: 5 ug, bid
     Route: 058
     Dates: start: 2009
  2. BYETTA [Suspect]
     Dosage: 10 ug, qd
     Route: 058
  3. METFORMIN [Concomitant]
     Indication: INSULIN-REQUIRING TYPE 2 DIABETES MELLITUS
     Dosage: UNK, each evening
     Route: 048
  4. LANTUS [Concomitant]
     Indication: INSULIN-REQUIRING TYPE 2 DIABETES MELLITUS
     Dosage: UNK UNK, bid
     Route: 058
     Dates: start: 201209, end: 201209
  5. LANTUS [Concomitant]
     Dosage: 10 u, bid
     Route: 058
     Dates: start: 201209

REACTIONS (14)
  - Cholecystitis infective [Recovered/Resolved]
  - Cholelithiasis [Recovered/Resolved]
  - Pancreatic enlargement [Recovered/Resolved]
  - Pancreas infection [Recovered/Resolved]
  - Nervousness [Not Recovered/Not Resolved]
  - Hernia [Recovered/Resolved]
  - Incisional drainage [Recovered/Resolved]
  - Cholecystectomy [Recovered/Resolved]
  - Blood glucose increased [Recovered/Resolved]
  - Blood glucose decreased [Not Recovered/Not Resolved]
  - Rash [Not Recovered/Not Resolved]
  - Abdominal pain [Recovered/Resolved]
  - Tremor [Not Recovered/Not Resolved]
  - Hyperhidrosis [Not Recovered/Not Resolved]
